FAERS Safety Report 4354203-5 (Version None)
Quarter: 2004Q2

REPORT INFORMATION
  Report Type: 
  Country: None (occurrence: None)
  Receive Date: 20040506
  Receipt Date: 20040311
  Transmission Date: 20050107
  Serious: Yes (Congenital Anomaly, Other)
  Sender: FDA-Public Use
  Company Number: PHEH2004US02983

PATIENT
  Age: 0 Day
  Sex: Female

DRUGS (1)
  1. ELIDEL [Suspect]
     Route: 064
     Dates: start: 20021001

REACTIONS (16)
  - CARDIOMYOPATHY [None]
  - CHYLOTHORAX [None]
  - CONGENITAL VENTRICULAR SEPTAL DEFECT [None]
  - CYST [None]
  - CYSTIC LYMPHANGIOMA [None]
  - DRUG EXPOSURE DURING PREGNANCY [None]
  - FINGER DEFORMITY [None]
  - GASTROOESOPHAGEAL REFLUX DISEASE [None]
  - GROWTH RETARDATION [None]
  - HYPERTROPHIC CARDIOMYOPATHY [None]
  - LOW SET EARS [None]
  - NEONATAL DISORDER [None]
  - NOONAN SYNDROME [None]
  - POLYHYDRAMNIOS [None]
  - PREMATURE BABY [None]
  - PULMONARY VALVE STENOSIS [None]
